FAERS Safety Report 13017846 (Version 1)
Quarter: 2016Q4

REPORT INFORMATION
  Report Type: Spontaneous
  Country: US (occurrence: US)
  Receive Date: 20161212
  Receipt Date: 20161212
  Transmission Date: 20170207
  Serious: No
  Sender: FDA-Public Use
  Company Number: US-GLAXOSMITHKLINE-US2016183046

PATIENT
  Age: 38 Year
  Sex: Female

DRUGS (1)
  1. ABREVA [Suspect]
     Active Substance: DOCOSANOL
     Indication: ORAL HERPES
     Dosage: UNK (USED OVER THE PAST TWO MONTHS)
     Dates: start: 201610, end: 201612

REACTIONS (4)
  - Condition aggravated [Unknown]
  - Incorrect drug administration duration [Unknown]
  - Oral herpes [Unknown]
  - Application site rash [Unknown]
